FAERS Safety Report 14413937 (Version 1)
Quarter: 2018Q1

REPORT INFORMATION
  Report Type: Spontaneous
  Country: US (occurrence: US)
  Receive Date: 20180118
  Receipt Date: 20180118
  Transmission Date: 20180509
  Serious: Yes (Hospitalization)
  Sender: FDA-Public Use
  Company Number: None

PATIENT
  Age: 71 Year
  Sex: Female

DRUGS (1)
  1. NINLARO [Suspect]
     Active Substance: IXAZOMIB CITRATE
     Indication: PRODUCT USED FOR UNKNOWN INDICATION
     Dosage: TAKES DAYS 1, 8, 15OF 28DS
     Route: 048
     Dates: start: 20171027

REACTIONS (4)
  - Abdominal pain upper [None]
  - Fall [None]
  - Blood glucose decreased [None]
  - Dehydration [None]

NARRATIVE: CASE EVENT DATE: 20171228
